FAERS Safety Report 6929347-1 (Version None)
Quarter: 2010Q3

REPORT INFORMATION
  Report Type: 
  Country: None (occurrence: None)
  Receive Date: 20100818
  Receipt Date: 20100804
  Transmission Date: 20110219
  Serious: Yes (Hospitalization)
  Sender: FDA-Public Use
  Company Number: US-ELI_LILLY_AND_COMPANY-US201008003537

PATIENT
  Sex: Female

DRUGS (5)
  1. FORTEO [Suspect]
     Indication: OSTEOPOROSIS
     Dosage: 20 UG, DAILY (1/D)
  2. SIMVASTATIN [Concomitant]
  3. ASPIRIN CHILDREN [Concomitant]
  4. METOPROLOL SUCCINATE [Concomitant]
  5. LISINOPRIL [Concomitant]

REACTIONS (2)
  - HIP ARTHROPLASTY [None]
  - RASH [None]
